FAERS Safety Report 8539293-8 (Version None)
Quarter: 2012Q3

REPORT INFORMATION
  Report Type: 
  Country: None (occurrence: None)
  Receive Date: 20120726
  Receipt Date: 20110725
  Transmission Date: 20120928
  Serious: No
  Sender: FDA-Public Use
  Company Number: US-ASTRAZENECA-2011SE44506

PATIENT
  Age: 58 Year
  Sex: Male

DRUGS (2)
  1. SEROQUEL XR [Suspect]
     Indication: INSOMNIA
     Route: 048
     Dates: start: 20110613
  2. HTN MEDICATION [Concomitant]
     Indication: HYPERTENSION

REACTIONS (3)
  - OFF LABEL USE [None]
  - DIZZINESS [None]
  - VIRAL UPPER RESPIRATORY TRACT INFECTION [None]
